FAERS Safety Report 5389358-7 (Version None)
Quarter: 2007Q3

REPORT INFORMATION
  Report Type: 
  Country: None (occurrence: None)
  Receive Date: 20070713
  Receipt Date: 20070713
  Transmission Date: 20080115
  Serious: Yes (Hospitalization)
  Sender: FDA-Public Use
  Company Number: None

PATIENT
  Age: 74 Year
  Sex: Female

DRUGS (13)
  1. SILDENAFIL CITRATE [Suspect]
     Indication: PULMONARY HYPERTENSION
     Dosage: 20 MG TID PO
     Route: 048
     Dates: start: 20060202, end: 20060203
  2. ADVAIR DISKUS 100/50 [Concomitant]
  3. ALBUTEROL [Concomitant]
  4. NASONEX [Concomitant]
  5. EFFEXOR [Concomitant]
  6. LASIX [Concomitant]
  7. HUMULIN INSULIN [Concomitant]
  8. LIPITOR [Concomitant]
  9. NIACIN [Concomitant]
  10. POTASSIUM CHLORIDE [Concomitant]
  11. TOPROL-XL [Concomitant]
  12. WELLBUTRIN [Concomitant]
  13. ZETIA [Concomitant]

REACTIONS (1)
  - HYPOTENSION [None]
